FAERS Safety Report 4872586-4 (Version None)
Quarter: 2006Q1

REPORT INFORMATION
  Report Type: 
  Country: None (occurrence: None)
  Receive Date: 20060103
  Receipt Date: 20051219
  Transmission Date: 20060701
  Serious: Yes (Hospitalization)
  Sender: FDA-Public Use
  Company Number: ES200512004010

PATIENT
  Age: 81 Year
  Sex: Female

DRUGS (2)
  1. FORTEO [Suspect]
     Indication: OSTEOPOROSIS
     Dosage: 20 UG, DAIILY (1/D), SUBCUTANEOUS
     Route: 058
     Dates: start: 20050902, end: 20051213
  2. FORTEO [Concomitant]

REACTIONS (1)
  - UPPER LIMB FRACTURE [None]
